FAERS Safety Report 20245060 (Version 1)
Quarter: 2021Q4

REPORT INFORMATION
  Report Type: Spontaneous
  Country: US (occurrence: US)
  Receive Date: 20211229
  Receipt Date: 20211229
  Transmission Date: 20220303
  Serious: Yes (Other)
  Sender: FDA-Public Use
  Company Number: US-STRIDES ARCOLAB LIMITED-2021SP005655

PATIENT
  Age: 2 Decade
  Sex: Male

DRUGS (12)
  1. ACETAZOLAMIDE [Suspect]
     Active Substance: ACETAZOLAMIDE
     Indication: Dystonia
     Dosage: UNK
     Route: 065
  2. GABAPENTIN [Suspect]
     Active Substance: GABAPENTIN
     Indication: Dystonia
     Dosage: UNK
     Route: 065
  3. CARBIDOPA\LEVODOPA [Suspect]
     Active Substance: CARBIDOPA\LEVODOPA
     Indication: Dystonia
     Dosage: UNK
     Route: 065
  4. TRIHEXYPHENIDYL [Suspect]
     Active Substance: TRIHEXYPHENIDYL
     Indication: Dystonia
     Dosage: UNK
     Route: 065
  5. DIAZEPAM [Suspect]
     Active Substance: DIAZEPAM
     Indication: Dystonia
     Dosage: UNK
     Route: 065
  6. OXCARBAZEPINE [Suspect]
     Active Substance: OXCARBAZEPINE
     Indication: Dystonia
     Dosage: UNK
     Route: 065
  7. BACLOFEN [Suspect]
     Active Substance: BACLOFEN
     Indication: Dystonia
     Dosage: UNK
     Route: 037
  8. BACLOFEN [Suspect]
     Active Substance: BACLOFEN
     Dosage: 252 MICROGRAM PER DAY
  9. MIDAZOLAM [Suspect]
     Active Substance: MIDAZOLAM
     Indication: Dystonia
     Dosage: UNK
     Route: 045
  10. MIDAZOLAM [Suspect]
     Active Substance: MIDAZOLAM
     Dosage: 300 MICROGRAM PER KG PER HR
     Route: 042
  11. DANTROLENE [Suspect]
     Active Substance: DANTROLENE
     Indication: Dystonia
     Dosage: UNK
     Route: 065
  12. BOTULINUM TOXIN NOS [Suspect]
     Active Substance: BOTULINUM TOXIN NOS
     Indication: Dystonia
     Dosage: UNK

REACTIONS (2)
  - Drug ineffective [Unknown]
  - Off label use [Unknown]
